FAERS Safety Report 13325972 (Version 1)
Quarter: 2017Q1

REPORT INFORMATION
  Report Type: Spontaneous
  Country: US (occurrence: US)
  Receive Date: 20170310
  Receipt Date: 20170310
  Transmission Date: 20170428
  Serious: No
  Sender: FDA-Public Use
  Company Number: US-ARALEZ PHARMACEUTICALS RD INC.-ARA-TP-US-2017-85

PATIENT
  Sex: Female
  Weight: 65.83 kg

DRUGS (5)
  1. CRESTOR [Suspect]
     Active Substance: ROSUVASTATIN CALCIUM
     Indication: STENT PLACEMENT
     Route: 048
     Dates: start: 2007
  2. GENERIC CRESTOR [Suspect]
     Active Substance: ROSUVASTATIN CALCIUM
     Indication: STENT PLACEMENT
     Route: 048
     Dates: start: 2016
  3. CRESTOR [Suspect]
     Active Substance: ROSUVASTATIN CALCIUM
     Dosage: HALF OF 20MG TABLET
     Route: 048
     Dates: start: 2007
  4. METOPROLOL SUCCINATE. [Suspect]
     Active Substance: METOPROLOL SUCCINATE
     Indication: STENT PLACEMENT
     Route: 048
     Dates: start: 2007
  5. LISINOPRIL. [Interacting]
     Active Substance: LISINOPRIL
     Indication: STENT PLACEMENT
     Route: 048

REACTIONS (4)
  - Incorrect dose administered [Unknown]
  - Hypertension [Unknown]
  - Myalgia [Unknown]
  - Heart rate irregular [Unknown]
